FAERS Safety Report 18374647 (Version 1)
Quarter: 2020Q4

REPORT INFORMATION
  Report Type: Spontaneous
  Country: CA (occurrence: CA)
  Receive Date: 20201012
  Receipt Date: 20201012
  Transmission Date: 20210114
  Serious: Yes (Other)
  Sender: FDA-Public Use
  Company Number: CA-ALLERGAN-2038448US

PATIENT
  Sex: Male

DRUGS (1)
  1. SALOFALK (MESALAZINE) [Suspect]
     Active Substance: MESALAMINE
     Indication: COLITIS

REACTIONS (3)
  - Colitis [Unknown]
  - Frequent bowel movements [Unknown]
  - Diarrhoea [Unknown]
